FAERS Safety Report 6359857-X (Version None)
Quarter: 2009Q3

REPORT INFORMATION
  Report Type: 
  Country: None (occurrence: None)
  Receive Date: 20090917
  Receipt Date: 20090907
  Transmission Date: 20100115
  Serious: Yes (Hospitalization)
  Sender: FDA-Public Use
  Company Number: B0591813A

PATIENT
  Sex: Male

DRUGS (6)
  1. CLAVENTIN [Suspect]
     Indication: DRUG USE FOR UNKNOWN INDICATION
     Dosage: 5G THREE TIMES PER DAY
     Route: 042
     Dates: start: 20090703, end: 20090712
  2. HEPARIN SODIUM [Suspect]
     Indication: ANTICOAGULANT THERAPY
     Dosage: 20IU3 PER DAY
     Route: 042
     Dates: start: 20090703, end: 20090713
  3. CIFLOX [Suspect]
     Indication: DRUG USE FOR UNKNOWN INDICATION
     Dosage: 400MG TWICE PER DAY
     Route: 042
     Dates: start: 20090703, end: 20090712
  4. DEROXAT [Concomitant]
  5. SERESTA [Concomitant]
  6. HAVLANE [Concomitant]

REACTIONS (4)
  - DEEP VEIN THROMBOSIS [None]
  - HEPARIN-INDUCED THROMBOCYTOPENIA [None]
  - OXYGEN SATURATION DECREASED [None]
  - PULMONARY EMBOLISM [None]
